FAERS Safety Report 4940876-2 (Version None)
Quarter: 2006Q1

REPORT INFORMATION
  Report Type: 
  Country: None (occurrence: None)
  Receive Date: 20060313
  Receipt Date: 20060301
  Transmission Date: 20060701
  Serious: Yes (Death, Other)
  Sender: FDA-Public Use
  Company Number: GR-BRISTOL-MYERS SQUIBB COMPANY-13308341

PATIENT
  Age: 76 Year
  Sex: Female

DRUGS (3)
  1. ERBITUX [Suspect]
     Indication: COLORECTAL CANCER METASTATIC
     Route: 042
     Dates: start: 20050414
  2. ELOXATIN [Concomitant]
     Indication: COLORECTAL CANCER METASTATIC
     Dates: start: 20050609
  3. XELODA [Concomitant]
     Indication: COLORECTAL CANCER METASTATIC
     Dates: start: 20050617

REACTIONS (2)
  - HYPERTRICHOSIS [None]
  - MALIGNANT NEOPLASM PROGRESSION [None]
